FAERS Safety Report 7178994-3 (Version None)
Quarter: 2010Q4

REPORT INFORMATION
  Report Type: 
  Country: None (occurrence: None)
  Receive Date: 20101221
  Receipt Date: 20101213
  Transmission Date: 20110411
  Serious: Yes (Death, Other)
  Sender: FDA-Public Use
  Company Number: PHHY2010DE74871

PATIENT
  Age: 47 Year
  Sex: Male

DRUGS (6)
  1. LEPONEX [Suspect]
     Indication: SCHIZOPHRENIA, RESIDUAL TYPE
     Dosage: 12.5 MG/DAY
     Route: 048
     Dates: start: 20080501, end: 20081001
  2. LEPONEX [Suspect]
     Dosage: 400 MG/DAY
     Route: 048
     Dates: start: 20081001, end: 20090201
  3. LEPONEX [Suspect]
     Dosage: 425 TO 475 MG/DAY
     Route: 048
     Dates: start: 20090201, end: 20091201
  4. LEPONEX [Suspect]
     Dosage: 400 MG/DAY
     Route: 048
     Dates: start: 20091201, end: 20100401
  5. LEPONEX [Suspect]
     Dosage: 350 MG/DAY
     Route: 048
     Dates: start: 20100401, end: 20100605
  6. TIAPRIDEX [Concomitant]
     Dosage: 300 MG DAILY
     Dates: end: 20091201

REACTIONS (4)
  - BODY MASS INDEX INCREASED [None]
  - DEATH [None]
  - DIABETES MELLITUS [None]
  - WEIGHT INCREASED [None]
